FAERS Safety Report 11488035 (Version 1)
Quarter: 2015Q3

REPORT INFORMATION
  Report Type: Spontaneous
  Country: FR (occurrence: FR)
  Receive Date: 20150909
  Receipt Date: 20150909
  Transmission Date: 20151125
  Serious: Yes (Other)
  Sender: FDA-Public Use
  Company Number: FR-MYLANLABS-2015M1029967

PATIENT

DRUGS (1)
  1. AMIODARONE [Suspect]
     Active Substance: AMIODARONE
     Indication: ATRIAL FIBRILLATION
     Dosage: 200 MG/DAY ; FOR 10 YEARS
     Route: 065

REACTIONS (5)
  - Photophobia [Unknown]
  - Toxicity to various agents [Unknown]
  - Hepatocellular injury [Unknown]
  - Cholestasis [Unknown]
  - Skin hyperpigmentation [Unknown]
